FAERS Safety Report 6046208-3 (Version None)
Quarter: 2009Q1

REPORT INFORMATION
  Report Type: 
  Country: None (occurrence: None)
  Receive Date: 20090121
  Receipt Date: 20090121
  Transmission Date: 20090719
  Serious: No
  Sender: FDA-Public Use
  Company Number: None

PATIENT
  Age: 34 Year
  Sex: Female
  Weight: 53.5244 kg

DRUGS (1)
  1. KENALOG [Suspect]

REACTIONS (4)
  - INJECTION SITE REACTION [None]
  - MUSCULOSKELETAL PAIN [None]
  - PAIN [None]
  - SKIN DISORDER [None]
